FAERS Safety Report 21104868 (Version 4)
Quarter: 2022Q3

REPORT INFORMATION
  Report Type: Spontaneous
  Country: FR (occurrence: FR)
  Receive Date: 20220720
  Receipt Date: 20220807
  Transmission Date: 20221026
  Serious: Yes (Death)
  Sender: FDA-Public Use
  Company Number: FR-AFSSAPS-AN20221602

PATIENT
  Age: 50 Year
  Sex: Male
  Weight: 76 kg

DRUGS (18)
  1. HALDOL [Suspect]
     Active Substance: HALOPERIDOL
     Indication: Mental disorder
     Dosage: 150 DROPS
     Route: 048
     Dates: start: 20220204
  2. HALDOL [Suspect]
     Active Substance: HALOPERIDOL
     Dosage: 200 DROPS
     Route: 048
     Dates: start: 20220211
  3. HALDOL [Suspect]
     Active Substance: HALOPERIDOL
     Dosage: 200 DROPS
     Route: 048
     Dates: start: 20220204, end: 20220212
  4. DIAZEPAM [Suspect]
     Active Substance: DIAZEPAM
     Indication: Mental disorder
     Route: 048
     Dates: start: 20220204
  5. DIAZEPAM [Suspect]
     Active Substance: DIAZEPAM
     Route: 048
     Dates: start: 20220209
  6. DIAZEPAM [Suspect]
     Active Substance: DIAZEPAM
     Route: 048
     Dates: start: 20220204, end: 20220212
  7. ZOPICLONE [Suspect]
     Active Substance: ZOPICLONE
     Indication: Mental disorder
     Route: 048
     Dates: start: 20220204, end: 20220212
  8. ZOPICLONE [Suspect]
     Active Substance: ZOPICLONE
     Dosage: AT BEDTIME
     Route: 048
     Dates: start: 20220209
  9. VALPROMIDE [Suspect]
     Active Substance: VALPROMIDE
     Indication: Mental disorder
     Route: 048
     Dates: start: 20220204
  10. VALPROMIDE [Suspect]
     Active Substance: VALPROMIDE
     Route: 048
     Dates: start: 20220211
  11. VALPROMIDE [Suspect]
     Active Substance: VALPROMIDE
     Route: 048
     Dates: start: 20220204, end: 20220212
  12. LEVOMEPROMAZINE [Suspect]
     Active Substance: LEVOMEPROMAZINE
     Indication: Mental disorder
     Route: 048
     Dates: start: 20220204
  13. LEVOMEPROMAZINE [Suspect]
     Active Substance: LEVOMEPROMAZINE
     Route: 048
     Dates: start: 20220205, end: 20220207
  14. LEVOMEPROMAZINE [Suspect]
     Active Substance: LEVOMEPROMAZINE
     Route: 048
     Dates: start: 20220207, end: 20220208
  15. LEVOMEPROMAZINE [Suspect]
     Active Substance: LEVOMEPROMAZINE
     Route: 048
     Dates: start: 20220208, end: 20220211
  16. LEVOMEPROMAZINE [Suspect]
     Active Substance: LEVOMEPROMAZINE
     Route: 048
     Dates: start: 20220211
  17. LEVOMEPROMAZINE [Suspect]
     Active Substance: LEVOMEPROMAZINE
     Route: 048
     Dates: start: 20220204, end: 20220212
  18. TROPATEPINE HYDROCHLORIDE [Suspect]
     Active Substance: TROPATEPINE HYDROCHLORIDE
     Indication: Mental disorder
     Route: 048
     Dates: start: 20220204, end: 20220212

REACTIONS (3)
  - Cardio-respiratory arrest [Fatal]
  - Off label use [Unknown]
  - Contraindicated product administered [Unknown]

NARRATIVE: CASE EVENT DATE: 20220212
